FAERS Safety Report 4675369-3 (Version None)
Quarter: 2005Q2

REPORT INFORMATION
  Report Type: 
  Country: None (occurrence: None)
  Receive Date: 20050527
  Receipt Date: 20050209
  Transmission Date: 20051028
  Serious: No
  Sender: FDA-Public Use
  Company Number: US-BRISTOL-MYERS SQUIBB COMPANY-12856191

PATIENT
  Age: 48 Year
  Sex: Female

DRUGS (3)
  1. ABILIFY [Suspect]
  2. LEXAPRO [Concomitant]
  3. ESKALITH CR [Concomitant]

REACTIONS (1)
  - TREMOR [None]
